FAERS Safety Report 9851009 (Version 2)
Quarter: 2014Q1

REPORT INFORMATION
  Report Type: Spontaneous
  Country: DE (occurrence: DE)
  Receive Date: 20140128
  Receipt Date: 20140324
  Transmission Date: 20141002
  Serious: Yes (Hospitalization)
  Sender: FDA-Public Use
  Company Number: DE-B.I. PHARMACEUTICALS,INC./RIDGEFIELD-2014-BI-02965DE

PATIENT
  Age: 86 Year
  Sex: Male

DRUGS (5)
  1. PRADAXA [Suspect]
     Indication: CEREBROVASCULAR ACCIDENT
     Dosage: 300 MG
     Route: 048
     Dates: start: 20130320
  2. PANTOZOL [Suspect]
     Indication: PROPHYLAXIS
     Dosage: 80 MG
     Route: 048
     Dates: start: 201303
  3. BISOPROLOL [Concomitant]
     Indication: ATRIAL FIBRILLATION
     Route: 048
  4. SIMVASTATIN [Concomitant]
     Indication: PROPHYLAXIS
     Route: 048
  5. CANDECOR COMP [Concomitant]
     Indication: HYPERTENSION
     Dosage: DAILY DOSE: 32/25MG
     Route: 048

REACTIONS (3)
  - Ischaemia [Unknown]
  - Drug level decreased [Unknown]
  - Drug interaction [Unknown]
